FAERS Safety Report 9681225 (Version 1)
Quarter: 2013Q4

REPORT INFORMATION
  Report Type: Spontaneous
  Country: US (occurrence: US)
  Receive Date: 20131111
  Receipt Date: 20131111
  Transmission Date: 20140711
  Serious: Yes (Hospitalization)
  Sender: FDA-Public Use
  Company Number: US-BAYER-2013-136083

PATIENT
  Age: 30 Year
  Sex: Female

DRUGS (14)
  1. YASMIN [Suspect]
  2. OCELLA [Suspect]
  3. FOLIC ACID [Concomitant]
  4. VITAMIN D [Concomitant]
  5. CEPHALEXIN [Concomitant]
  6. LIDEX [Concomitant]
  7. CALCIUM [Concomitant]
  8. VITAMIN E [Concomitant]
  9. VITAMIN C [Concomitant]
  10. MULTIVITAMIN [Concomitant]
  11. MOTRIN [Concomitant]
  12. ROBITUSSIN [GUAIFENESIN] [Concomitant]
  13. CEFTRIAXONE [Concomitant]
  14. ZITHROMAX [Concomitant]

REACTIONS (1)
  - Cerebral infarction [None]
